FAERS Safety Report 7076650-3 (Version None)
Quarter: 2010Q4

REPORT INFORMATION
  Report Type: 
  Country: None (occurrence: None)
  Receive Date: 20101101
  Receipt Date: 20101026
  Transmission Date: 20110411
  Serious: No
  Sender: FDA-Public Use
  Company Number: US-PFIZER INC-2010113569

PATIENT
  Age: 33 Year
  Sex: Female

DRUGS (2)
  1. LYRICA [Suspect]
     Indication: FIBROMYALGIA
     Dosage: UNK
     Dates: start: 20100420, end: 20100801
  2. LYRICA [Suspect]
     Indication: NEURALGIA

REACTIONS (1)
  - DRUG INEFFECTIVE [None]
